FAERS Safety Report 5427389-9 (Version None)
Quarter: 2007Q3

REPORT INFORMATION
  Report Type: 
  Country: None (occurrence: None)
  Receive Date: 20070823
  Receipt Date: 20070808
  Transmission Date: 20080115
  Serious: Yes (Other)
  Sender: FDA-Public Use
  Company Number: PHBS2007IT13339

PATIENT
  Age: 57 Year
  Sex: Female

DRUGS (1)
  1. VISUDYNE [Suspect]
     Indication: MACULOPATHY
     Dosage: 5 ML DAILY IV
     Route: 042
     Dates: start: 20061124, end: 20061124

REACTIONS (1)
  - PEMPHIGOID [None]
